FAERS Safety Report 18007646 (Version 2)
Quarter: 2020Q3

REPORT INFORMATION
  Report Type: Spontaneous
  Country: CZ (occurrence: CZ)
  Receive Date: 20200710
  Receipt Date: 20200807
  Transmission Date: 20201103
  Serious: Yes (Other)
  Sender: FDA-Public Use
  Company Number: CZ-SA-2020SA175217

PATIENT

DRUGS (1)
  1. LEMTRADA [Suspect]
     Active Substance: ALEMTUZUMAB
     Indication: MULTIPLE SCLEROSIS
     Dosage: 12 MG
     Route: 041
     Dates: start: 201811, end: 201811

REACTIONS (8)
  - Hyperthyroidism [Unknown]
  - Mental disorder [Unknown]
  - Congenital hypothyroidism [Not Recovered/Not Resolved]
  - Stress [Unknown]
  - Thyroiditis chronic [Not Recovered/Not Resolved]
  - Paraparesis [Unknown]
  - Multiple sclerosis relapse [Unknown]
  - Emotional distress [Unknown]

NARRATIVE: CASE EVENT DATE: 2019
